FAERS Safety Report 11812909 (Version 1)
Quarter: 2015Q4

REPORT INFORMATION
  Report Type: Spontaneous
  Country: US (occurrence: US)
  Receive Date: 20151209
  Receipt Date: 20151209
  Transmission Date: 20160305
  Serious: Yes (Death, Hospitalization)
  Sender: FDA-Public Use
  Company Number: US-PFIZER INC-2015413978

PATIENT
  Age: 69 Year
  Sex: Female
  Weight: 62 kg

DRUGS (11)
  1. ACYCLOVIR /00587301/ [Concomitant]
     Active Substance: ACYCLOVIR
     Indication: PROPHYLAXIS
     Dosage: 800 MG, 2X/DAY
     Dates: start: 20151009, end: 20151119
  2. PRAVACHOL [Concomitant]
     Active Substance: PRAVASTATIN SODIUM
     Indication: CARDIOVASCULAR EVENT PROPHYLAXIS
     Dates: start: 2008, end: 20151119
  3. FLUCONAZOLE. [Concomitant]
     Active Substance: FLUCONAZOLE
     Indication: PLATELET DISORDER
     Dosage: 200 MG, 2X/DAY
     Route: 048
     Dates: start: 201509, end: 20151119
  4. AMICAR [Concomitant]
     Active Substance: AMINOCAPROIC ACID
     Indication: HAEMORRHAGE
     Dosage: 1000 MG, UNK
     Route: 048
     Dates: start: 20151119, end: 20151119
  5. VITAMIN E [Concomitant]
     Active Substance: .ALPHA.-TOCOPHEROL
     Dates: end: 20151119
  6. TRAMADOL. [Concomitant]
     Active Substance: TRAMADOL
     Indication: HEADACHE
     Dosage: UNK
     Dates: start: 2015, end: 20151119
  7. LYSINE [Concomitant]
     Active Substance: LYSINE
     Dates: end: 20151119
  8. METOPROLOL [Concomitant]
     Active Substance: METOPROLOL
     Dosage: UNK UNK, 2X/DAY
     Dates: end: 20151119
  9. VFEND [Suspect]
     Active Substance: VORICONAZOLE
     Dosage: 300 MG, 2X/DAY
     Route: 048
  10. HYDROCHLOROTHIAZIDE. [Concomitant]
     Active Substance: HYDROCHLOROTHIAZIDE
     Indication: PALPITATIONS
     Dosage: 12.5 MG, DAILY
     Dates: start: 2008, end: 20151119
  11. VFEND [Suspect]
     Active Substance: VORICONAZOLE
     Indication: BRONCHOPULMONARY ASPERGILLOSIS
     Dosage: 250 MG, UNK
     Dates: start: 201510

REACTIONS (6)
  - Haematemesis [Unknown]
  - Leukaemia [Fatal]
  - Condition aggravated [Fatal]
  - General physical health deterioration [Fatal]
  - Multi-organ failure [Fatal]
  - Lung infection [Unknown]

NARRATIVE: CASE EVENT DATE: 20151120
